FAERS Safety Report 25463994 (Version 1)
Quarter: 2025Q2

REPORT INFORMATION
  Report Type: Report from Study
  Country: CA (occurrence: CA)
  Receive Date: 20250621
  Receipt Date: 20250621
  Transmission Date: 20250717
  Serious: Yes (Other)
  Sender: ASTELLAS
  Company Number: CA-PFIZER INC-202500119595

PATIENT
  Age: 66 Year
  Sex: Male

DRUGS (3)
  1. ENFORTUMAB VEDOTIN-EJFV [Suspect]
     Active Substance: ENFORTUMAB VEDOTIN-EJFV
     Indication: Transitional cell carcinoma metastatic
     Route: 065
  2. PEMBROLIZUMAB [Suspect]
     Active Substance: PEMBROLIZUMAB
     Indication: Transitional cell carcinoma metastatic
     Route: 042
  3. PEMBROLIZUMAB [Suspect]
     Active Substance: PEMBROLIZUMAB
     Route: 042

REACTIONS (8)
  - Diarrhoea haemorrhagic [Unknown]
  - Pyrexia [Unknown]
  - Decreased appetite [Unknown]
  - Myalgia [Unknown]
  - Insomnia [Unknown]
  - Bone pain [Unknown]
  - Abdominal pain [Unknown]
  - Inappropriate schedule of product administration [Unknown]
